FAERS Safety Report 13076360 (Version 2)
Quarter: 2017Q1

REPORT INFORMATION
  Report Type: Report from Study
  Country: DE (occurrence: DE)
  Receive Date: 20161230
  Receipt Date: 20170206
  Transmission Date: 20170428
  Serious: Yes (Hospitalization)
  Sender: FDA-Public Use
  Company Number: DE-JNJFOC-20160820834

PATIENT
  Age: 50 Year
  Sex: Male
  Weight: 115 kg

DRUGS (3)
  1. STELARA [Suspect]
     Active Substance: USTEKINUMAB
     Indication: PSORIATIC ARTHROPATHY
     Route: 058
     Dates: start: 20140926
  2. METHOTREXATE. [Concomitant]
     Active Substance: METHOTREXATE
     Dosage: SINCE UNSPECIFIED DATE IN 2011.
     Route: 065
  3. STELARA [Suspect]
     Active Substance: USTEKINUMAB
     Indication: PSORIASIS
     Route: 058
     Dates: start: 20140926

REACTIONS (7)
  - Soft tissue injury [Unknown]
  - Bronchitis [Unknown]
  - Fall [Recovered/Resolved]
  - Upper respiratory tract infection [Unknown]
  - Aortic arteriosclerosis [Unknown]
  - Pneumonia [Unknown]
  - Humerus fracture [Recovered/Resolved]

NARRATIVE: CASE EVENT DATE: 20160316
